FAERS Safety Report 12980226 (Version 6)
Quarter: 2019Q3

REPORT INFORMATION
  Report Type: Report from Study
  Country: JP (occurrence: JP)
  Receive Date: 20161128
  Receipt Date: 20190701
  Transmission Date: 20191004
  Serious: Yes (Hospitalization, Other)
  Sender: FDA-Public Use
  Company Number: JP-BRISTOL-MYERS SQUIBB COMPANY-BMS-2015-078699

PATIENT
  Age: 66 Year
  Sex: Male
  Weight: 57 kg

DRUGS (2)
  1. NIVOLUMAB [Suspect]
     Active Substance: NIVOLUMAB
     Indication: MALIGNANT MELANOMA
     Dosage: 2 MILLIGRAM/KILOGRAM, Q3WK
     Route: 041
     Dates: start: 20150930, end: 20160413
  2. IPILIMUMAB [Suspect]
     Active Substance: IPILIMUMAB
     Indication: MALIGNANT MELANOMA
     Dosage: 180 MILLIGRAM, QD
     Route: 041
     Dates: start: 20160511, end: 20160601

REACTIONS (6)
  - Diabetes insipidus [Unknown]
  - Hypophysitis [Recovering/Resolving]
  - Hypopituitarism [Recovering/Resolving]
  - Off label use [Unknown]
  - Hepatic function abnormal [Recovered/Resolved]
  - Nausea [Recovered/Resolved]

NARRATIVE: CASE EVENT DATE: 20151004
